FAERS Safety Report 8602251-9 (Version None)
Quarter: 2012Q3

REPORT INFORMATION
  Report Type: 
  Country: None (occurrence: None)
  Receive Date: 20120817
  Receipt Date: 20120803
  Transmission Date: 20120928
  Serious: Yes (Other)
  Sender: FDA-Public Use
  Company Number: CH-MYLANLABS-2012S1016410

PATIENT
  Age: 73 Year
  Sex: Female

DRUGS (5)
  1. DICLOFENAC [Suspect]
     Indication: FLANK PAIN
     Route: 065
  2. ALENDRONATE SODIUM [Concomitant]
     Indication: OSTEOPOROSIS
     Route: 065
  3. COLOPHOS [Suspect]
     Indication: COLONOSCOPY
     Route: 065
  4. CALCIUM [Suspect]
     Indication: OSTEOPOROSIS
     Route: 065
  5. CARBAMAZEPINE [Concomitant]
     Indication: EPILEPSY
     Route: 065

REACTIONS (3)
  - RENAL FAILURE [None]
  - ACUTE PHOSPHATE NEPHROPATHY [None]
  - RENAL FAILURE ACUTE [None]
